FAERS Safety Report 4322006-3 (Version None)
Quarter: 2004Q1

REPORT INFORMATION
  Report Type: 
  Country: None (occurrence: None)
  Receive Date: 20040323
  Receipt Date: 20031230
  Transmission Date: 20041129
  Serious: Yes (Hospitalization)
  Sender: FDA-Public Use
  Company Number: PHBS2003DK14547

PATIENT
  Age: 60 Year
  Sex: Male

DRUGS (4)
  1. LEPONEX [Suspect]
     Indication: SCHIZOAFFECTIVE DISORDER
     Route: 048
     Dates: start: 19820101
  2. LEPONEX [Suspect]
     Dosage: 200 MG/D
     Route: 048
     Dates: start: 20031201
  3. SERENASE [Concomitant]
     Dosage: 10 TO 20 MG/D
     Route: 048
  4. RIVOTRIL [Concomitant]
     Route: 065

REACTIONS (17)
  - ANAEMIA [None]
  - BLOOD ALBUMIN DECREASED [None]
  - BLOOD ALKALINE PHOSPHATASE INCREASED [None]
  - BLOOD LACTATE DEHYDROGENASE INCREASED [None]
  - BODY TEMPERATURE INCREASED [None]
  - COAGULATION FACTOR VII LEVEL DECREASED [None]
  - COAGULATION FACTOR X LEVEL DECREASED [None]
  - DRUG LEVEL INCREASED [None]
  - FEELING ABNORMAL [None]
  - GENERAL PHYSICAL CONDITION ABNORMAL [None]
  - LABORATORY TEST ABNORMAL [None]
  - LIVER DISORDER [None]
  - LYMPHOCYTE MORPHOLOGY ABNORMAL [None]
  - MANIA [None]
  - MONOCYTE MORPHOLOGY ABNORMAL [None]
  - PNEUMONIA [None]
  - PROTHROMBIN LEVEL DECREASED [None]
